FAERS Safety Report 11406721 (Version 6)
Quarter: 2020Q2

REPORT INFORMATION
  Report Type: Spontaneous
  Country: US (occurrence: US)
  Receive Date: 20150821
  Receipt Date: 20200424
  Transmission Date: 20200713
  Serious: Yes (Other)
  Sender: FDA-Public Use
  Company Number: US-PFIZER INC-2015275805

PATIENT
  Age: 77 Year
  Sex: Male
  Weight: 116 kg

DRUGS (25)
  1. BYSTOLIC [Concomitant]
     Active Substance: NEBIVOLOL HYDROCHLORIDE
     Indication: BLOOD PRESSURE ABNORMAL
     Dosage: 5 MG, 1X/DAY (5MG EVERY MORNING BY MOUTH)
     Route: 048
  2. OSTEO BI-FLEX CHONDROITIN GLUCOSAMINE [Concomitant]
     Indication: KNEE OPERATION
     Dosage: 275/1500 MG, 2 TABLETS, 1X/DAY
     Route: 048
  3. MAGNESIUM [Concomitant]
     Active Substance: MAGNESIUM
     Dosage: 250 MG, DAILY
     Route: 048
  4. FUROSEMIDE. [Concomitant]
     Active Substance: FUROSEMIDE
     Indication: POLYURIA
     Dosage: 40 MG, DAILY
     Route: 048
  5. LASIX [Concomitant]
     Active Substance: FUROSEMIDE
     Indication: JOINT SWELLING
     Dosage: 40 MG, 1X/DAY
     Route: 048
  6. OSTEO BI-FLEX CHONDROITIN GLUCOSAMINE [Concomitant]
     Dosage: 2 DF, 2X/DAY
     Route: 048
  7. CHONDROITIN [Concomitant]
     Active Substance: CHONDROITIN
     Indication: ARTHROPATHY
     Dosage: 1200 MG, DAILY
     Route: 048
  8. BYSTOLIC [Concomitant]
     Active Substance: NEBIVOLOL HYDROCHLORIDE
     Indication: MYOCARDIAL INFARCTION
  9. WARFARIN [Concomitant]
     Active Substance: WARFARIN
     Indication: DEEP VEIN THROMBOSIS
     Dosage: ROTATES BETWEEN 4MG AND 5MG
     Route: 048
  10. REVATIO [Suspect]
     Active Substance: SILDENAFIL CITRATE
     Indication: DYSPNOEA
     Dosage: 20 MG, 3X/DAY
     Route: 048
     Dates: start: 201508
  11. OMEPRAZOLE. [Concomitant]
     Active Substance: OMEPRAZOLE
     Indication: DYSPEPSIA
     Dosage: 40 MG, 1X/DAY (EVERY MORNING)
     Route: 048
  12. CALCIUM [Concomitant]
     Active Substance: CALCIUM
     Indication: ARTHROPATHY
     Dosage: 600 MG, DAILY
     Route: 048
  13. AMOXICILLIN. [Concomitant]
     Active Substance: AMOXICILLIN
     Indication: ANTIBIOTIC PROPHYLAXIS
     Dosage: 500 MG, 3X/DAY
     Route: 048
     Dates: start: 20151117
  14. REVATIO [Suspect]
     Active Substance: SILDENAFIL CITRATE
     Indication: PULMONARY HYPERTENSION
     Dosage: 20 MG, 3X/DAY
     Route: 048
     Dates: end: 201503
  15. FINASTERIDE. [Concomitant]
     Active Substance: FINASTERIDE
     Indication: BENIGN PROSTATIC HYPERPLASIA
     Dosage: 5 MG, 1X/DAY AT NIGHT (AT BEDTIME)
     Route: 048
  16. LASIX [Concomitant]
     Active Substance: FUROSEMIDE
     Indication: CARDIAC FAILURE CONGESTIVE
     Dosage: 20 MG, 1X/DAY
     Route: 048
  17. WARFARIN [Concomitant]
     Active Substance: WARFARIN
     Indication: PULMONARY THROMBOSIS
  18. FUROSEMIDE. [Concomitant]
     Active Substance: FUROSEMIDE
     Indication: MYOCARDIAL INFARCTION
  19. WARFARIN [Concomitant]
     Active Substance: WARFARIN
     Indication: ANTICOAGULANT THERAPY
  20. OMEPRAZOLE. [Concomitant]
     Active Substance: OMEPRAZOLE
     Indication: GASTROOESOPHAGEAL REFLUX DISEASE
  21. CALCIUM [Concomitant]
     Active Substance: CALCIUM
     Indication: PROPHYLAXIS
  22. MAGNESIUM [Concomitant]
     Active Substance: MAGNESIUM
     Indication: MUSCULOSKELETAL PAIN
     Dosage: 400 MG, UNK
     Route: 048
  23. GLUCOSAMINE [Concomitant]
     Active Substance: GLUCOSAMINE
     Indication: ARTHROPATHY
     Dosage: 1500 MG, 1X/DAY
     Route: 048
  24. HYDROCODONE/ACETAMINOPHEN [Concomitant]
     Active Substance: ACETAMINOPHEN\HYDROCODONE
     Indication: PAIN
     Dosage: HYDROCODONE BITARTRATE: 7.5MG, PARACETAMOL: 325 MG, AS NEEDED
     Dates: start: 20151116
  25. CHLORHEXIDINE GLUCONATE. [Concomitant]
     Active Substance: CHLORHEXIDINE GLUCONATE
     Indication: GINGIVAL DISORDER
     Dosage: 15 ML, DAILY (SWISH AND SPIT OUT AFTER BREAKFAST AND BEFORE BEDTIME)

REACTIONS (3)
  - Cold sweat [Recovered/Resolved]
  - Dental caries [Not Recovered/Not Resolved]
  - Dental pulp disorder [Unknown]

NARRATIVE: CASE EVENT DATE: 20150812
